FAERS Safety Report 18005447 (Version 1)
Quarter: 2020Q3

REPORT INFORMATION
  Report Type: Spontaneous
  Country: US (occurrence: US)
  Receive Date: 20200709
  Receipt Date: 20200709
  Transmission Date: 20201103
  Serious: Yes (Other)
  Sender: FDA-Public Use
  Company Number: US-AMGEN-USASP2020108796

PATIENT
  Age: 66 Year
  Sex: Female

DRUGS (4)
  1. OTEZLA [Suspect]
     Active Substance: APREMILAST
     Indication: PSORIASIS
  2. OTEZLA [Suspect]
     Active Substance: APREMILAST
     Indication: PSORIATIC ARTHROPATHY
     Dosage: 30 MILLIGRAM, BID ( HAD TO COMBINE THE 10 MG AND 20 MG TO MAKE 30 MG)
     Route: 065
     Dates: start: 202006
  3. OTEZLA [Suspect]
     Active Substance: APREMILAST
     Indication: RHEUMATOID ARTHRITIS
  4. METHADONE [Concomitant]
     Active Substance: METHADONE HYDROCHLORIDE
     Dosage: UNK

REACTIONS (3)
  - Psoriatic arthropathy [Not Recovered/Not Resolved]
  - Diarrhoea [Recovering/Resolving]
  - Therapeutic product effect decreased [Unknown]

NARRATIVE: CASE EVENT DATE: 2020
